FAERS Safety Report 24374663 (Version 1)
Quarter: 2024Q3

REPORT INFORMATION
  Report Type: Spontaneous
  Country: US (occurrence: US)
  Receive Date: 20240927
  Receipt Date: 20240927
  Transmission Date: 20241016
  Serious: No
  Sender: SANOFI AVENTIS
  Company Number: US-SA-2024SA276016

PATIENT
  Age: 54 Year
  Sex: Female
  Weight: 69.841 kg

DRUGS (1)
  1. DUPIXENT [Suspect]
     Active Substance: DUPILUMAB
     Dosage: 600 MG, 1X
     Route: 058
     Dates: start: 20240829, end: 20240829

REACTIONS (2)
  - Rash [Unknown]
  - Injection site swelling [Unknown]

NARRATIVE: CASE EVENT DATE: 20240829
